FAERS Safety Report 8947841 (Version 1)
Quarter: 2012Q4

REPORT INFORMATION
  Report Type: Spontaneous
  Country: DK (occurrence: None)
  Receive Date: 20121127
  Receipt Date: 20121127
  Transmission Date: 20130627
  Serious: Yes (Other)
  Sender: FDA-Public Use
  Company Number: 2012MA013522

PATIENT
  Age: 29 Year
  Sex: Female

DRUGS (4)
  1. HYDROCORTISONE [Suspect]
     Indication: MOUTH ULCER
     Route: 002
     Dates: start: 20120623
  2. NORETHISTERONE [Suspect]
     Route: 048
     Dates: start: 20120622
  3. CERAZETTE [Suspect]
     Route: 048
     Dates: start: 20120315, end: 20120821
  4. MALARONE [Suspect]
     Route: 048
     Dates: start: 20120610, end: 20120807

REACTIONS (2)
  - Pregnancy on oral contraceptive [None]
  - Maternal exposure before pregnancy [None]
